FAERS Safety Report 9701830 (Version 1)
Quarter: 2013Q4

REPORT INFORMATION
  Report Type: Spontaneous
  Country: US (occurrence: US)
  Receive Date: 20131121
  Receipt Date: 20131121
  Transmission Date: 20140711
  Serious: No
  Sender: FDA-Public Use
  Company Number: US-PFIZER INC-2013331735

PATIENT
  Sex: 0

DRUGS (2)
  1. PRISTIQ [Suspect]
     Dosage: UNK
  2. PRISTIQ [Suspect]
     Dosage: 100 MG, DAILY

REACTIONS (1)
  - Increased tendency to bruise [Unknown]
